FAERS Safety Report 22022307 (Version 1)
Quarter: 2023Q1

REPORT INFORMATION
  Report Type: Spontaneous
  Country: US (occurrence: US)
  Receive Date: 20230222
  Receipt Date: 20230222
  Transmission Date: 20230418
  Serious: No
  Sender: FDA-Public Use
  Company Number: US-BAYER-2023A016103

PATIENT
  Age: 61 Year
  Sex: Male

DRUGS (2)
  1. MIRALAX [Suspect]
     Active Substance: POLYETHYLENE GLYCOL 3350
     Indication: Colonoscopy
     Dosage: 8.3OZ OF MIRALAX WITH 64OZ OF GATORADE
     Route: 048
  2. LOTOP [Concomitant]
     Dosage: UNK

REACTIONS (2)
  - Off label use [Recovered/Resolved]
  - Drug hypersensitivity [Recovered/Resolved]
